FAERS Safety Report 9001906 (Version 3)
Quarter: 2013Q1

REPORT INFORMATION
  Report Type: Spontaneous
  Country: FI (occurrence: FI)
  Receive Date: 20130107
  Receipt Date: 20130301
  Transmission Date: 20140127
  Serious: Yes (Other)
  Sender: FDA-Public Use
  Company Number: FI-ROCHE-1176650

PATIENT
  Age: 54 Year
  Sex: Female

DRUGS (6)
  1. RIVATRIL [Suspect]
     Indication: MYOCLONUS
     Route: 048
  2. RIVATRIL [Interacting]
     Route: 048
  3. CHAMPIX [Interacting]
     Indication: EX-TOBACCO USER
     Route: 048
     Dates: start: 20121215
  4. CHAMPIX [Interacting]
     Route: 048
  5. CHAMPIX [Interacting]
     Route: 048
  6. KEPPRA [Interacting]
     Indication: MYOCLONUS
     Route: 048

REACTIONS (2)
  - Drug interaction [Unknown]
  - Drug ineffective [Unknown]
